FAERS Safety Report 8740279 (Version 4)
Quarter: 2012Q4

REPORT INFORMATION
  Report Type: 
  Country: US (occurrence: US)
  Receive Date: 20120823
  Receipt Date: 20121119
  Transmission Date: 20130627
  Serious: Yes (Other)
  Sender: FDA-Public Use
  Company Number: US-009507513-2011SP027261

PATIENT

DRUGS (2)
  1. NUVARING [Suspect]
     Indication: CONTRACEPTION
     Dates: start: 200806, end: 201008
  2. NUVARING [Suspect]
     Indication: CONTRACEPTION

REACTIONS (16)
  - Cholecystectomy [Unknown]
  - Cholecystitis chronic [Unknown]
  - Mental disorder [Unknown]
  - Limb injury [Unknown]
  - Vomiting [Unknown]
  - Abdominal pain [Unknown]
  - Diarrhoea [Unknown]
  - Nausea [Unknown]
  - Road traffic accident [Unknown]
  - Mental status changes [Unknown]
  - Intervertebral disc protrusion [Unknown]
  - Neck injury [Unknown]
  - Joint injury [Unknown]
  - Back disorder [Unknown]
  - Hangover [Recovered/Resolved]
  - Vomiting [Recovered/Resolved]
